FAERS Safety Report 20675023 (Version 2)
Quarter: 2022Q2

REPORT INFORMATION
  Report Type: Report from Study
  Country: BR (occurrence: BR)
  Receive Date: 20220405
  Receipt Date: 20220502
  Transmission Date: 20220721
  Serious: Yes (Other)
  Sender: FDA-Public Use
  Company Number: BR-ABBVIE-22K-020-4343757-00

PATIENT
  Age: 68 Year
  Sex: Female
  Weight: 78 kg

DRUGS (1)
  1. RINVOQ [Suspect]
     Active Substance: UPADACITINIB
     Indication: Rheumatoid arthritis
     Route: 048
     Dates: start: 20211005

REACTIONS (5)
  - Asthmatic crisis [Recovering/Resolving]
  - Respiratory tract infection [Recovering/Resolving]
  - Secretion discharge [Unknown]
  - Haemoglobin abnormal [Unknown]
  - COVID-19 [Unknown]

NARRATIVE: CASE EVENT DATE: 20220326
